FAERS Safety Report 6130223-5 (Version None)
Quarter: 2009Q1

REPORT INFORMATION
  Report Type: 
  Country: None (occurrence: None)
  Receive Date: 20090324
  Receipt Date: 20090318
  Transmission Date: 20090719
  Serious: Yes (Hospitalization)
  Sender: FDA-Public Use
  Company Number: US-KINGPHARMUSA00001-K200900306

PATIENT
  Age: 65 Year
  Sex: Female

DRUGS (8)
  1. ALTACE [Suspect]
     Indication: HYPERTENSION
     Dosage: 10 MG, QD
     Route: 048
  2. CIPROFLOXACIN HCL [Suspect]
     Indication: GASTROENTERITIS
     Dosage: 500 MG, QD
     Route: 048
     Dates: start: 20090104, end: 20090110
  3. DIGITOXIN [Concomitant]
     Indication: CARDIAC FAILURE
     Dosage: 0.07 MG, QD
     Route: 048
  4. EUTHYROX [Concomitant]
     Indication: HYPOTHYROIDISM
     Dosage: 50 UG, UNK
     Route: 048
  5. FALITHROM [Concomitant]
     Indication: ATRIAL FIBRILLATION
     Dosage: UNK
     Route: 048
     Dates: start: 20081201
  6. HYDROCHLOROTHIAZIDE [Concomitant]
     Indication: CARDIAC FAILURE
     Dosage: 25 MG, UNK
     Route: 048
  7. METHOHEXITAL [Concomitant]
     Indication: HYPERTENSION
     Dosage: 190 MG, UNK
     Route: 048
  8. TORSEMIDE [Concomitant]
     Indication: CARDIAC FAILURE
     Dosage: 20 MG, UNK
     Route: 048

REACTIONS (7)
  - ATRIAL FIBRILLATION [None]
  - CARDIAC DISORDER [None]
  - CHEST PAIN [None]
  - COUGH [None]
  - DRUG INTERACTION [None]
  - DYSPNOEA [None]
  - GASTROENTERITIS [None]
